FAERS Safety Report 19505706 (Version 2)
Quarter: 2021Q3

REPORT INFORMATION
  Report Type: Spontaneous
  Country: PL (occurrence: PL)
  Receive Date: 20210708
  Receipt Date: 20210715
  Transmission Date: 20211014
  Serious: Yes (Other)
  Sender: FDA-Public Use
  Company Number: PL-TOPROL-2020000445

PATIENT
  Age: 38 Year
  Sex: Female
  Weight: 62 kg

DRUGS (11)
  1. ENOXAPARINE CRUSIA [Concomitant]
     Active Substance: ENOXAPARIN SODIUM
     Route: 065
  2. BETALOC ZOK [Suspect]
     Active Substance: METOPROLOL SUCCINATE
     Route: 048
  3. METHYLDOPA. [Concomitant]
     Active Substance: METHYLDOPA
     Route: 065
  4. MAGNESIUM PLUS B6 [Concomitant]
     Dosage: UNK
     Route: 065
  5. BETALOC ZOK [Suspect]
     Active Substance: METOPROLOL SUCCINATE
     Route: 048
  6. METHYLDOPA. [Concomitant]
     Active Substance: METHYLDOPA
     Route: 065
  7. BETALOC ZOK [Suspect]
     Active Substance: METOPROLOL SUCCINATE
     Route: 048
  8. BETALOC ZOK [Suspect]
     Active Substance: METOPROLOL SUCCINATE
     Route: 048
  9. METHYLDOPA. [Concomitant]
     Active Substance: METHYLDOPA
     Route: 065
  10. ASPIRIN. [Concomitant]
     Active Substance: ASPIRIN
     Route: 065
  11. POTASSIUM [Concomitant]
     Active Substance: POTASSIUM
     Route: 065

REACTIONS (3)
  - Exposure during pregnancy [Recovered/Resolved]
  - Product use in unapproved indication [Unknown]
  - Bradycardia [Recovered/Resolved]
